FAERS Safety Report 19503200 (Version 2)
Quarter: 2021Q3

REPORT INFORMATION
  Report Type: Spontaneous
  Country: US (occurrence: US)
  Receive Date: 20210708
  Receipt Date: 20210720
  Transmission Date: 20211014
  Serious: Yes (Other)
  Sender: FDA-Public Use
  Company Number: US-AUROBINDO-AUR-APL-2021-028756

PATIENT
  Age: 87 Year
  Sex: Female

DRUGS (7)
  1. OCTREOTIDE. [Suspect]
     Active Substance: OCTREOTIDE
     Indication: COAGULOPATHY
     Dosage: UNK
     Route: 065
  2. VITAMIN K [Suspect]
     Active Substance: PHYTONADIONE
     Indication: COAGULOPATHY
     Dosage: 10 MILLIGRAM, ONCE A DAY
     Route: 042
  3. TAZOBACTAM [Concomitant]
     Active Substance: TAZOBACTAM
     Indication: PNEUMONIA
     Dosage: UNK
     Route: 042
  4. PIPERACILLIN. [Concomitant]
     Active Substance: PIPERACILLIN SODIUM
     Indication: PNEUMONIA
     Dosage: UNK
     Route: 042
  5. PREDNISONA [Suspect]
     Active Substance: PREDNISONE
     Indication: COAGULOPATHY
     Dosage: 1 MILLIGRAM/KILOGRAM, ONCE A DAY
     Route: 048
  6. LEVOFLOXACIN. [Concomitant]
     Active Substance: LEVOFLOXACIN
     Indication: PNEUMONIA
     Dosage: UNK
     Route: 042
  7. DEXAMETHASONE. [Suspect]
     Active Substance: DEXAMETHASONE
     Indication: COAGULOPATHY
     Dosage: UNK
     Route: 042

REACTIONS (1)
  - Drug ineffective [Unknown]
